FAERS Safety Report 4917856-6 (Version None)
Quarter: 2006Q1

REPORT INFORMATION
  Report Type: 
  Country: None (occurrence: None)
  Receive Date: 20060215
  Receipt Date: 20060131
  Transmission Date: 20060701
  Serious: Yes (Other)
  Sender: FDA-Public Use
  Company Number: B0409777A

PATIENT
  Age: 42 Year
  Sex: Female

DRUGS (4)
  1. RETROVIR [Suspect]
     Indication: HIV INFECTION
  2. EPIVIR [Suspect]
     Indication: HIV INFECTION
  3. ZIAGEN [Suspect]
     Indication: HIV INFECTION
  4. NEVIRAPINE [Suspect]
     Indication: HIV INFECTION

REACTIONS (2)
  - DRUG EXPOSURE DURING PREGNANCY [None]
  - PRE-ECLAMPSIA [None]
